FAERS Safety Report 21882844 (Version 1)
Quarter: 2023Q1

REPORT INFORMATION
  Report Type: Report from Study
  Country: US (occurrence: US)
  Receive Date: 20230119
  Receipt Date: 20230119
  Transmission Date: 20230418
  Serious: No
  Sender: FDA-Public Use
  Company Number: US-ABBVIE-4275221

PATIENT
  Sex: Male

DRUGS (3)
  1. IMBRUVICA [Suspect]
     Active Substance: IBRUTINIB
     Indication: Chronic lymphocytic leukaemia
     Dosage: TIME INTERVAL: 0.33333333 DAYS
     Route: 048
     Dates: start: 20221015
  2. Immunoglobulin [Concomitant]
     Indication: Product used for unknown indication
     Dosage: INTRAVENOUS IMMUNOGLOBULIN (IVIG)
     Route: 042
  3. IRON [Concomitant]
     Active Substance: IRON
     Indication: Product used for unknown indication

REACTIONS (4)
  - Localised infection [Recovering/Resolving]
  - White blood cell count decreased [Recovering/Resolving]
  - Energy increased [Recovering/Resolving]
  - Weight increased [Recovering/Resolving]
